FAERS Safety Report 12375357 (Version 5)
Quarter: 2016Q4

REPORT INFORMATION
  Report Type: Spontaneous
  Country: US (occurrence: US)
  Receive Date: 20160517
  Receipt Date: 20161223
  Transmission Date: 20170207
  Serious: Yes (Other)
  Sender: FDA-Public Use
  Company Number: PHEH2016US012036

PATIENT
  Sex: Female

DRUGS (4)
  1. JADENU [Suspect]
     Active Substance: DEFERASIROX
     Indication: HAEMOCHROMATOSIS
     Dosage: 360 MG, QD
     Route: 048
     Dates: start: 20160115
  2. JADENU [Suspect]
     Active Substance: DEFERASIROX
     Dosage: 14 MG/KG, UNK
     Route: 048
  3. JADENU [Suspect]
     Active Substance: DEFERASIROX
     Indication: MYELODYSPLASTIC SYNDROME
     Dosage: 810 MG, QD
     Route: 048
  4. JADENU [Suspect]
     Active Substance: DEFERASIROX
     Dosage: 360 MG, QD
     Route: 048

REACTIONS (9)
  - Myelodysplastic syndrome [Unknown]
  - Blister [Unknown]
  - Haemochromatosis [Unknown]
  - Ulcer [Unknown]
  - Disease progression [Unknown]
  - Skin ulcer [Recovered/Resolved]
  - Platelet count decreased [Unknown]
  - Skin discolouration [Unknown]
  - Drug intolerance [Unknown]
